FAERS Safety Report 16611426 (Version 3)
Quarter: 2019Q3

REPORT INFORMATION
  Report Type: Spontaneous
  Country: US (occurrence: US)
  Receive Date: 20190722
  Receipt Date: 20190925
  Transmission Date: 20191004
  Serious: No
  Sender: FDA-Public Use
  Company Number: US-PFIZER INC-2019307762

PATIENT
  Age: 62 Year
  Sex: Female
  Weight: 72.5 kg

DRUGS (16)
  1. DOCETAXEL EAGLE PHARMACEUTICALS [Suspect]
     Active Substance: DOCETAXEL
     Indication: BREAST CANCER FEMALE
     Dosage: 135 MG, CYCLIC (6 CYCLES, EVERY THREE WEEKS)
     Dates: start: 20121112, end: 20130201
  2. DOCETAXEL. [Suspect]
     Active Substance: DOCETAXEL
     Indication: BREAST CANCER FEMALE
     Dosage: 135 MG, CYCLIC (6 CYCLES, EVERY THREE WEEKS)
     Dates: start: 20121112, end: 20130201
  3. DOCETAXEL SANDOZ [Suspect]
     Active Substance: DOCETAXEL
     Indication: BREAST CANCER FEMALE
     Dosage: 135 MG, CYCLIC (6 CYCLES, EVERY THREE WEEKS)
     Dates: start: 20121112, end: 20130201
  4. DOCETAXEL SAGENT PHARMACEUTICALS [Suspect]
     Active Substance: DOCETAXEL
     Indication: BREAST CANCER FEMALE
     Dosage: 135 MG, CYCLIC (6 CYCLES, EVERY THREE WEEKS)
     Dates: start: 20121112, end: 20130201
  5. HUMALOG [Concomitant]
     Active Substance: INSULIN LISPRO
     Dosage: UNK
     Dates: start: 20000101, end: 20151201
  6. HERCEPTIN [Concomitant]
     Active Substance: TRASTUZUMAB
     Indication: CHEMOTHERAPY
     Dosage: UNK
  7. DOCETAXEL NORTHSTAR RX LLC [Suspect]
     Active Substance: DOCETAXEL
     Indication: BREAST CANCER FEMALE
     Dosage: 135 MG, CYCLIC (6 CYCLES, EVERY THREE WEEKS)
     Dates: start: 20121112, end: 20130201
  8. BENICAR [Concomitant]
     Active Substance: OLMESARTAN MEDOXOMIL
     Dosage: UNK
  9. DOCETAXEL SANOFI-AVENTIS [Suspect]
     Active Substance: DOCETAXEL
     Indication: BREAST CANCER FEMALE
     Dosage: 135 MG, CYCLIC (6 CYCLES, EVERY THREE WEEKS)
     Dates: start: 20121112, end: 20130201
  10. DOCETAXEL DR. REDDY^S LABORATORIES [Suspect]
     Active Substance: DOCETAXEL
     Indication: BREAST CANCER FEMALE
     Dosage: 135 MG, CYCLIC (6 CYCLES, EVERY THREE WEEKS)
     Dates: start: 20121112, end: 20130201
  11. PARAPLATIN [Concomitant]
     Active Substance: CARBOPLATIN
     Indication: CHEMOTHERAPY
     Dosage: UNK
  12. DOCETAXEL ACCORD [Suspect]
     Active Substance: DOCETAXEL
     Indication: BREAST CANCER FEMALE
     Dosage: 135 MG, CYCLIC (6 CYCLES, EVERY THREE WEEKS)
     Dates: start: 20121112, end: 20130201
  13. DOCEFREZ [Suspect]
     Active Substance: DOCETAXEL ANHYDROUS
     Indication: BREAST CANCER FEMALE
     Dosage: 135 MG, CYCLIC (6 CYCLES, EVERY THREE WEEKS)
     Dates: start: 20121112, end: 20130201
  14. LEVEMIR [Concomitant]
     Active Substance: INSULIN DETEMIR
     Dosage: UNK
     Dates: start: 20000101
  15. DOCETAXEL TEVA [Suspect]
     Active Substance: DOCETAXEL
     Indication: BREAST CANCER FEMALE
     Dosage: 135 MG, CYCLIC (6 CYCLES, EVERY THREE WEEKS)
     Dates: start: 20121112, end: 20130201
  16. DOCETAXEL. [Suspect]
     Active Substance: DOCETAXEL
     Dosage: UNK
     Dates: start: 20121012, end: 20130201

REACTIONS (5)
  - Madarosis [Not Recovered/Not Resolved]
  - Alopecia [Not Recovered/Not Resolved]
  - Hair texture abnormal [Not Recovered/Not Resolved]
  - Hair disorder [Not Recovered/Not Resolved]
  - Hair colour changes [Not Recovered/Not Resolved]

NARRATIVE: CASE EVENT DATE: 20130801
